FAERS Safety Report 9065927 (Version 1)
Quarter: 2013Q1

REPORT INFORMATION
  Report Type: Report from Study
  Country: US (occurrence: US)
  Receive Date: 20130214
  Receipt Date: 20130214
  Transmission Date: 20140127
  Serious: No
  Sender: FDA-Public Use
  Company Number: US-VERTEX PHARMACEUTICALS INC.-2013-002000

PATIENT
  Age: 50 None
  Sex: Male
  Weight: 98 kg

DRUGS (4)
  1. VX-950 (TELAPREVIR) [Suspect]
     Indication: HEPATITIS C
     Dosage: 750 MG, TID
     Route: 048
  2. XIFAXAN [Concomitant]
     Dosage: 550 MG, UNK
  3. FLOMAX [Concomitant]
     Dosage: 0.4 MG, UNK
  4. CALCIUM [Concomitant]

REACTIONS (1)
  - Rectal haemorrhage [Unknown]
